FAERS Safety Report 9654868 (Version 2)
Quarter: 2013Q4

REPORT INFORMATION
  Report Type: Spontaneous
  Country: US (occurrence: US)
  Receive Date: 20131029
  Receipt Date: 20131029
  Transmission Date: 20140711
  Serious: No
  Sender: FDA-Public Use
  Company Number: US-BAXTER-2013BAX018707

PATIENT
  Sex: Male
  Weight: 77.18 kg

DRUGS (1)
  1. SUPRANE (DESFLURANE, USP) [Suspect]
     Indication: ANAESTHESIA
     Route: 055
     Dates: start: 1992

REACTIONS (2)
  - Device leakage [Unknown]
  - Occupational exposure to product [Unknown]
